FAERS Safety Report 18280889 (Version 3)
Quarter: 2021Q3

REPORT INFORMATION
  Report Type: Spontaneous
  Country: CA (occurrence: CA)
  Receive Date: 20200918
  Receipt Date: 20210917
  Transmission Date: 20211014
  Serious: Yes (Other)
  Sender: FDA-Public Use
  Company Number: CA-DRREDDYS-USA/CAN/20/0126946

PATIENT
  Age: 61 Year
  Sex: Female

DRUGS (99)
  1. DILTIAZEM HYDROCHLORIDE. [Suspect]
     Active Substance: DILTIAZEM HYDROCHLORIDE
     Indication: PRODUCT USED FOR UNKNOWN INDICATION
     Route: 065
  2. FLOVENT [Suspect]
     Active Substance: FLUTICASONE PROPIONATE
     Indication: PRODUCT USED FOR UNKNOWN INDICATION
     Route: 065
  3. FUROSEMIDE. [Suspect]
     Active Substance: FUROSEMIDE
  4. PMS?NITROFURANTOIN [Suspect]
     Active Substance: NITROFURANTOIN
     Route: 065
  5. PREDNISONE. [Suspect]
     Active Substance: PREDNISONE
  6. PREDNISONE. [Suspect]
     Active Substance: PREDNISONE
  7. PREDNISONE. [Suspect]
     Active Substance: PREDNISONE
  8. QUINAPRIL HYDROCHLORIDE. [Suspect]
     Active Substance: QUINAPRIL HYDROCHLORIDE
     Indication: PRODUCT USED FOR UNKNOWN INDICATION
     Route: 065
  9. UNIPHYL [Suspect]
     Active Substance: THEOPHYLLINE ANHYDROUS
     Indication: PRODUCT USED FOR UNKNOWN INDICATION
     Route: 065
  10. NITRO [Suspect]
     Active Substance: NITROGLYCERIN
     Indication: PRODUCT USED FOR UNKNOWN INDICATION
     Route: 065
  11. CYANOCOBALAMIN. [Suspect]
     Active Substance: CYANOCOBALAMIN
     Indication: PRODUCT USED FOR UNKNOWN INDICATION
     Route: 042
  12. SEMAGLUTIDE [Suspect]
     Active Substance: SEMAGLUTIDE
     Indication: PRODUCT USED FOR UNKNOWN INDICATION
     Route: 042
  13. ATORVASTATIN [Suspect]
     Active Substance: ATORVASTATIN
     Indication: PRODUCT USED FOR UNKNOWN INDICATION
     Route: 065
  14. ADVAIR HFA [Suspect]
     Active Substance: FLUTICASONE PROPIONATE\SALMETEROL XINAFOATE
  15. APO?PREDNISONE [Suspect]
     Active Substance: PREDNISONE
     Route: 065
  16. APO?PREDNISONE [Suspect]
     Active Substance: PREDNISONE
     Route: 065
  17. METFORMIN HYDROCHLORIDE. [Suspect]
     Active Substance: METFORMIN HYDROCHLORIDE
     Indication: PRODUCT USED FOR UNKNOWN INDICATION
     Route: 065
  18. MOMETASONE [Suspect]
     Active Substance: MOMETASONE
  19. NITROGLYCERIN. [Suspect]
     Active Substance: NITROGLYCERIN
  20. NITROGLYCERIN. [Suspect]
     Active Substance: NITROGLYCERIN
  21. QUINAPRIL HYDROCHLORIDE. [Suspect]
     Active Substance: QUINAPRIL HYDROCHLORIDE
  22. SPIRIVA RESPIMAT [Suspect]
     Active Substance: TIOTROPIUM BROMIDE
  23. THEOPHYLLINE [Suspect]
     Active Substance: THEOPHYLLINE ANHYDROUS
  24. THEOPHYLLINE [Suspect]
     Active Substance: THEOPHYLLINE ANHYDROUS
  25. THEOPHYLLINE [Suspect]
     Active Substance: THEOPHYLLINE ANHYDROUS
  26. SINGULAIR [Suspect]
     Active Substance: MONTELUKAST SODIUM
     Indication: PRODUCT USED FOR UNKNOWN INDICATION
     Route: 065
  27. TIOTROPIUM BROMIDE [Suspect]
     Active Substance: TIOTROPIUM BROMIDE
     Indication: PRODUCT USED FOR UNKNOWN INDICATION
     Route: 065
  28. DICETEL [Suspect]
     Active Substance: PINAVERIUM BROMIDE
     Indication: PRODUCT USED FOR UNKNOWN INDICATION
  29. ADVAIR HFA [Suspect]
     Active Substance: FLUTICASONE PROPIONATE\SALMETEROL XINAFOATE
     Route: 065
  30. ATROVENT [Suspect]
     Active Substance: IPRATROPIUM BROMIDE
     Indication: PRODUCT USED FOR UNKNOWN INDICATION
     Route: 065
  31. DICETEL [Suspect]
     Active Substance: PINAVERIUM BROMIDE
     Indication: PRODUCT USED FOR UNKNOWN INDICATION
     Route: 065
  32. DIMENHYDRINATE. [Suspect]
     Active Substance: DIMENHYDRINATE
     Indication: PRODUCT USED FOR UNKNOWN INDICATION
     Route: 065
  33. FLOVENT [Suspect]
     Active Substance: FLUTICASONE PROPIONATE
  34. LOPERAMIDE [Suspect]
     Active Substance: LOPERAMIDE
  35. MONTELUKAST [Suspect]
     Active Substance: MONTELUKAST SODIUM
  36. MONTELUKAST [Suspect]
     Active Substance: MONTELUKAST SODIUM
  37. NOVORAPID [Suspect]
     Active Substance: INSULIN ASPART
     Indication: PRODUCT USED FOR UNKNOWN INDICATION
     Route: 058
  38. QUINAPRIL HYDROCHLORIDE. [Suspect]
     Active Substance: QUINAPRIL HYDROCHLORIDE
  39. RATIO?LACTULOSE [Suspect]
     Active Substance: LACTULOSE
     Route: 065
  40. SALBUTAMOL [Suspect]
     Active Substance: ALBUTEROL
     Indication: PRODUCT USED FOR UNKNOWN INDICATION
     Route: 065
  41. SPIRIVA RESPIMAT [Suspect]
     Active Substance: TIOTROPIUM BROMIDE
  42. VITAMIN B12 [Suspect]
     Active Substance: CYANOCOBALAMIN
  43. VITAMIN B12 [Suspect]
     Active Substance: CYANOCOBALAMIN
  44. LACTULOSE. [Suspect]
     Active Substance: LACTULOSE
     Indication: PRODUCT USED FOR UNKNOWN INDICATION
     Route: 065
  45. UNIPHYL [Suspect]
     Active Substance: THEOPHYLLINE ANHYDROUS
     Indication: PRODUCT USED FOR UNKNOWN INDICATION
     Route: 065
  46. APO?AMITRIPTYLINE [Suspect]
     Active Substance: AMITRIPTYLINE HYDROCHLORIDE
     Indication: PRODUCT USED FOR UNKNOWN INDICATION
     Route: 065
  47. APO?PREDNISONE [Suspect]
     Active Substance: PREDNISONE
     Route: 065
  48. NOVORAPID [Suspect]
     Active Substance: INSULIN ASPART
     Route: 042
  49. SALBUTAMOL [Suspect]
     Active Substance: ALBUTEROL
  50. SPIRIVA RESPIMAT [Suspect]
     Active Substance: TIOTROPIUM BROMIDE
  51. THEOPHYLLINE [Suspect]
     Active Substance: THEOPHYLLINE ANHYDROUS
  52. COMBIVENT [Suspect]
     Active Substance: ALBUTEROL SULFATE\IPRATROPIUM BROMIDE
     Route: 065
  53. LACTASE [Suspect]
     Active Substance: LACTASE
  54. METFORMIN HYDROCHLORIDE. [Suspect]
     Active Substance: METFORMIN HYDROCHLORIDE
     Route: 065
  55. MONTELUKAST [Suspect]
     Active Substance: MONTELUKAST SODIUM
  56. MONTELUKAST [Suspect]
     Active Substance: MONTELUKAST SODIUM
  57. PREDNISONE. [Suspect]
     Active Substance: PREDNISONE
  58. VITAMIN B12 [Suspect]
     Active Substance: CYANOCOBALAMIN
     Indication: PRODUCT USED FOR UNKNOWN INDICATION
     Route: 042
  59. VITAMIN B12 [Suspect]
     Active Substance: CYANOCOBALAMIN
  60. PROCTOSEDYL [Suspect]
     Active Substance: DIBUCAINE HYDROCHLORIDE\HYDROCORTISONE
     Indication: PRODUCT USED FOR UNKNOWN INDICATION
     Route: 065
  61. GLYCERYL TRINITRATE [Suspect]
     Active Substance: NITROGLYCERIN
     Indication: PRODUCT USED FOR UNKNOWN INDICATION
  62. NASONEX [Suspect]
     Active Substance: MOMETASONE FUROATE
     Route: 065
  63. FLUOXETINE 40MG [Suspect]
     Active Substance: FLUOXETINE HYDROCHLORIDE
     Indication: PRODUCT USED FOR UNKNOWN INDICATION
     Route: 065
  64. APO?ACETAMINOPHEN [Suspect]
     Active Substance: ACETAMINOPHEN
     Indication: PRODUCT USED FOR UNKNOWN INDICATION
     Route: 065
  65. APO?ACETAMINOPHEN [Suspect]
     Active Substance: ACETAMINOPHEN
     Route: 065
  66. COMBIVENT [Suspect]
     Active Substance: ALBUTEROL SULFATE\IPRATROPIUM BROMIDE
     Indication: PRODUCT USED FOR UNKNOWN INDICATION
     Route: 065
  67. LACTASE [Suspect]
     Active Substance: LACTASE
     Indication: PRODUCT USED FOR UNKNOWN INDICATION
     Route: 065
  68. NITROGLYCERIN. [Suspect]
     Active Substance: NITROGLYCERIN
     Indication: PRODUCT USED FOR UNKNOWN INDICATION
     Route: 065
  69. NOVORAPID [Suspect]
     Active Substance: INSULIN ASPART
     Route: 058
  70. QUINAPRIL HYDROCHLORIDE. [Suspect]
     Active Substance: QUINAPRIL HYDROCHLORIDE
  71. SALBUTAMOL [Suspect]
     Active Substance: ALBUTEROL
  72. SPIRIVA RESPIMAT [Suspect]
     Active Substance: TIOTROPIUM BROMIDE
  73. VITAMIN B12 [Suspect]
     Active Substance: CYANOCOBALAMIN
  74. NASONEX [Suspect]
     Active Substance: MOMETASONE FUROATE
     Indication: PRODUCT USED FOR UNKNOWN INDICATION
     Route: 065
  75. APO?AMITRIPTYLINE [Suspect]
     Active Substance: AMITRIPTYLINE HYDROCHLORIDE
     Route: 065
  76. APO?ATORVASTATIN [Suspect]
     Active Substance: ATORVASTATIN
     Indication: PRODUCT USED FOR UNKNOWN INDICATION
     Route: 065
  77. AZITHROMYCIN ANHYDROUS. [Suspect]
     Active Substance: AZITHROMYCIN ANHYDROUS
     Indication: PRODUCT USED FOR UNKNOWN INDICATION
     Route: 065
  78. BETAMETHASONE VALERATE. [Suspect]
     Active Substance: BETAMETHASONE VALERATE
     Indication: ECZEMA
     Route: 065
  79. MEPOLIZUMAB [Suspect]
     Active Substance: MEPOLIZUMAB
     Indication: PRODUCT USED FOR UNKNOWN INDICATION
     Route: 058
  80. MEPOLIZUMAB [Suspect]
     Active Substance: MEPOLIZUMAB
  81. MONTELUKAST [Suspect]
     Active Substance: MONTELUKAST SODIUM
     Indication: PRODUCT USED FOR UNKNOWN INDICATION
     Route: 065
  82. NITROGLYCERIN. [Suspect]
     Active Substance: NITROGLYCERIN
  83. PREDNISONE. [Suspect]
     Active Substance: PREDNISONE
     Indication: PRODUCT USED FOR UNKNOWN INDICATION
     Route: 065
  84. QUINAPRIL HYDROCHLORIDE. [Suspect]
     Active Substance: QUINAPRIL HYDROCHLORIDE
  85. RATIO?LACTULOSE [Suspect]
     Active Substance: LACTULOSE
     Indication: PRODUCT USED FOR UNKNOWN INDICATION
     Route: 048
  86. SALBUTAMOL [Suspect]
     Active Substance: ALBUTEROL
  87. SPIRIVA RESPIMAT [Suspect]
     Active Substance: TIOTROPIUM BROMIDE
     Indication: PRODUCT USED FOR UNKNOWN INDICATION
     Dosage: 5G/DOSE
  88. ADVAIR HFA [Suspect]
     Active Substance: FLUTICASONE PROPIONATE\SALMETEROL XINAFOATE
     Indication: PRODUCT USED FOR UNKNOWN INDICATION
     Route: 065
  89. APO?PREDNISONE [Suspect]
     Active Substance: PREDNISONE
     Indication: PRODUCT USED FOR UNKNOWN INDICATION
     Route: 065
  90. APO?PREDNISONE [Suspect]
     Active Substance: PREDNISONE
     Route: 065
  91. FUROSEMIDE. [Suspect]
     Active Substance: FUROSEMIDE
     Indication: PRODUCT USED FOR UNKNOWN INDICATION
     Route: 065
  92. LOPERAMIDE [Suspect]
     Active Substance: LOPERAMIDE
     Indication: PRODUCT USED FOR UNKNOWN INDICATION
     Route: 065
  93. MOMETASONE [Suspect]
     Active Substance: MOMETASONE
     Indication: PRODUCT USED FOR UNKNOWN INDICATION
     Route: 065
  94. NITROGLYCERIN. [Suspect]
     Active Substance: NITROGLYCERIN
  95. PMS?NITROFURANTOIN [Suspect]
     Active Substance: NITROFURANTOIN
     Indication: PRODUCT USED FOR UNKNOWN INDICATION
     Route: 065
  96. SALBUTAMOL [Suspect]
     Active Substance: ALBUTEROL
  97. THEOPHYLLINE [Suspect]
     Active Substance: THEOPHYLLINE ANHYDROUS
     Indication: PRODUCT USED FOR UNKNOWN INDICATION
     Route: 065
  98. SINGULAIR [Suspect]
     Active Substance: MONTELUKAST SODIUM
     Route: 065
  99. SILDENAFIL CITRATE. [Suspect]
     Active Substance: SILDENAFIL CITRATE
     Indication: PRODUCT USED FOR UNKNOWN INDICATION
     Route: 065

REACTIONS (32)
  - Stress [Unknown]
  - Influenza [Unknown]
  - Rhinorrhoea [Unknown]
  - Malaise [Unknown]
  - Prolonged expiration [Unknown]
  - Loss of personal independence in daily activities [Unknown]
  - Respiration abnormal [Unknown]
  - Flank pain [Unknown]
  - Injury [Unknown]
  - Productive cough [Unknown]
  - Wheezing [Unknown]
  - Asthma [Unknown]
  - Upper respiratory tract infection [Unknown]
  - Appetite disorder [Unknown]
  - Fall [Unknown]
  - Nasopharyngitis [Unknown]
  - Chest discomfort [Unknown]
  - Insomnia [Unknown]
  - Depressed mood [Unknown]
  - Heart sounds [Unknown]
  - Nasal congestion [Unknown]
  - Dyspnoea [Unknown]
  - Angina pectoris [Unknown]
  - Rales [Unknown]
  - Lower respiratory tract infection [Unknown]
  - Pyrexia [Unknown]
  - Sleep disorder due to a general medical condition [Unknown]
  - Dyspnoea exertional [Unknown]
  - Weight decreased [Unknown]
  - Depressive symptom [Unknown]
  - Cough [Unknown]
  - Chest pain [Unknown]
